FAERS Safety Report 10021187 (Version 1)
Quarter: 2014Q1

REPORT INFORMATION
  Report Type: Spontaneous
  Country: US (occurrence: None)
  Receive Date: 20140318
  Receipt Date: 20140318
  Transmission Date: 20141002
  Serious: No
  Sender: FDA-Public Use
  Company Number: None

PATIENT
  Age: 50 Year
  Sex: Female

DRUGS (1)
  1. QUETIAPINE [Suspect]
     Indication: INSOMNIA
     Dosage: ONE TABLET
     Route: 048
     Dates: start: 20130717, end: 20130820

REACTIONS (1)
  - Myoclonus [None]
